FAERS Safety Report 12579028 (Version 2)
Quarter: 2016Q3

REPORT INFORMATION
  Report Type: Spontaneous
  Country: DE (occurrence: DE)
  Receive Date: 20160721
  Receipt Date: 20160830
  Transmission Date: 20161109
  Serious: Yes (Other)
  Sender: FDA-Public Use
  Company Number: PHHY2016DE099598

PATIENT
  Sex: Female

DRUGS (1)
  1. RITALINE [Suspect]
     Active Substance: METHYLPHENIDATE HYDROCHLORIDE
     Indication: STRESS
     Dosage: 2 DF, QD IN THE EVENING
     Route: 048

REACTIONS (3)
  - Drug abuse [Unknown]
  - Performance status decreased [Unknown]
  - Amphetamines positive [Recovered/Resolved]

NARRATIVE: CASE EVENT DATE: 20160718
